FAERS Safety Report 9103559 (Version 1)
Quarter: 2013Q1

REPORT INFORMATION
  Report Type: Report from Study
  Country: IN (occurrence: IN)
  Receive Date: 20130219
  Receipt Date: 20130219
  Transmission Date: 20140127
  Serious: Yes (Hospitalization)
  Sender: FDA-Public Use
  Company Number: IN-GLAXOSMITHKLINE-B0856837A

PATIENT
  Sex: Male
  Weight: 57 kg

DRUGS (1)
  1. SERETIDE [Suspect]
     Indication: ASTHMA

REACTIONS (1)
  - Dyspnoea [Recovered/Resolved]
